FAERS Safety Report 20741577 (Version 1)
Quarter: 2022Q2

REPORT INFORMATION
  Report Type: Spontaneous
  Country: DE (occurrence: None)
  Receive Date: 20220422
  Receipt Date: 20220422
  Transmission Date: 20220721
  Serious: Yes (Other)
  Sender: FDA-Public Use
  Company Number: DE-ROCHE-2405754

PATIENT
  Sex: Male
  Weight: 78 kg

DRUGS (25)
  1. RITUXIMAB [Suspect]
     Active Substance: RITUXIMAB
     Indication: Diffuse large B-cell lymphoma
     Dosage: 1ST LINE, R-CHOP 14, 6 CYCLES
     Route: 065
     Dates: start: 201804, end: 201806
  2. RITUXIMAB [Suspect]
     Active Substance: RITUXIMAB
     Dosage: 2ND LINE, R-GOP 2 CYCLES
     Route: 065
     Dates: start: 201810, end: 201812
  3. RITUXIMAB [Suspect]
     Active Substance: RITUXIMAB
     Dosage: FURTHER LINE, G-MALL, NHL, ELDERLY PROTOCOL 1 CYCLE
     Route: 065
     Dates: start: 201812, end: 201901
  4. RITUXIMAB [Suspect]
     Active Substance: RITUXIMAB
     Dosage: FURTHER LINE, R-DEXA BEAM 1 CYCLE
     Route: 065
     Dates: start: 201901, end: 201902
  5. RITUXIMAB [Suspect]
     Active Substance: RITUXIMAB
     Dosage: FURTHER LINE, LENALIDOMIDE 2 CYCLES
     Route: 065
     Dates: start: 201902, end: 201904
  6. RITUXIMAB [Suspect]
     Active Substance: RITUXIMAB
     Dosage: FURTHER LINE, R- BENDAMSUTINE
     Route: 065
     Dates: start: 20190401
  7. BENDAMUSTINE [Suspect]
     Active Substance: BENDAMUSTINE
     Indication: Diffuse large B-cell lymphoma
     Dosage: FURTHER LINE, R- BENDAMSUTINE
     Route: 065
     Dates: start: 201904
  8. DEXAMETHASONE [Suspect]
     Active Substance: DEXAMETHASONE
     Indication: Diffuse large B-cell lymphoma
     Dosage: 1ST LINE, R-GDP, 2 CYCLES
     Route: 065
     Dates: start: 201810, end: 201812
  9. DEXAMETHASONE [Suspect]
     Active Substance: DEXAMETHASONE
     Dosage: FURTHER LINE, R-DEXA BEAM 1 CYCLE
     Route: 065
     Dates: start: 201901, end: 201902
  10. CYCLOPHOSPHAMIDE [Suspect]
     Active Substance: CYCLOPHOSPHAMIDE
     Indication: Diffuse large B-cell lymphoma
     Dosage: 1ST LINE, R-CHOP 14, 6 CYCLES
     Route: 065
     Dates: start: 201804, end: 201806
  11. AZATHIOPRINE [Suspect]
     Active Substance: AZATHIOPRINE
     Indication: Diffuse large B-cell lymphoma
     Dosage: 1ST LINE, R-CHOP 14, 6 CYCLES
     Route: 065
     Dates: start: 201804, end: 201806
  12. METHOTREXATE [Suspect]
     Active Substance: METHOTREXATE
     Indication: Diffuse large B-cell lymphoma
     Dosage: 1ST LINE, R-CHOP 14, 6 CYCLES
     Route: 065
     Dates: start: 201804, end: 201806
  13. THALIDOMIDE [Suspect]
     Active Substance: THALIDOMIDE
     Indication: Diffuse large B-cell lymphoma
     Dosage: 1ST LINE, R-CHOP 14, 6 CYCLES
     Route: 065
     Dates: start: 201804, end: 201806
  14. CYCLOPHOSPHAMIDE\DOXORUBICIN\PREDNISONE\VINCRISTINE [Suspect]
     Active Substance: CYCLOPHOSPHAMIDE\DOXORUBICIN\PREDNISONE\VINCRISTINE
     Indication: Diffuse large B-cell lymphoma
     Dosage: 1ST LINE, R-CHOP 14, 6 CYCLES
     Route: 065
     Dates: start: 201804, end: 201806
  15. BEAM [Suspect]
     Active Substance: SODIUM FLUORIDE
     Indication: Diffuse large B-cell lymphoma
     Dosage: FURTHER LINE, R-DEXA BEAM 1 CYCLE
     Route: 065
     Dates: start: 201901, end: 201902
  16. GEMCITABINE [Concomitant]
     Active Substance: GEMCITABINE
     Indication: Diffuse large B-cell lymphoma
     Dosage: 2ND LINE, R-GDP 2 CYCLES
     Dates: start: 201810, end: 201812
  17. CISPLATIN [Concomitant]
     Active Substance: CISPLATIN
     Indication: Diffuse large B-cell lymphoma
     Dosage: 2ND LINE, R-GDP 2 CYCLES
     Dates: start: 201810, end: 201812
  18. CARMUSTINE [Concomitant]
     Active Substance: CARMUSTINE
     Dosage: FURTHER LINE, R-DEXA BEAM 1 CYCLE
     Dates: start: 201901, end: 201902
  19. ETOPOSIDE [Concomitant]
     Active Substance: ETOPOSIDE
     Dosage: FURTHER LINE, R-DEXA BEAM 1 CYCLE
     Dates: start: 201901, end: 201902
  20. CYTARABINE [Concomitant]
     Active Substance: CYTARABINE
     Dosage: FURTHER LINE, R-DEXA BEAM 1 CYCLE
     Dates: start: 201901, end: 201902
  21. MELPHALAN [Concomitant]
     Active Substance: MELPHALAN
     Dosage: FURTHER LINE, R-DEXA BEAM 1 CYCLE
     Dates: start: 201901, end: 201902
  22. LENALIDOMIDE [Concomitant]
     Active Substance: LENALIDOMIDE
     Indication: Diffuse large B-cell lymphoma
     Dosage: 2 CYCLE
     Dates: start: 201902, end: 201904
  23. DOXORUBICIN [Concomitant]
     Active Substance: DOXORUBICIN
     Indication: Diffuse large B-cell lymphoma
     Dosage: 1ST LINE, R-CHOP 14, 6 CYCLES
     Dates: start: 201804, end: 201806
  24. VINCRISTINE [Concomitant]
     Active Substance: VINCRISTINE
     Indication: Diffuse large B-cell lymphoma
     Dosage: 1ST LINE, R-CHOP 14, 6 CYCLES
     Dates: start: 201804, end: 201806
  25. PREDNISONE [Concomitant]
     Active Substance: PREDNISONE
     Indication: Diffuse large B-cell lymphoma
     Dosage: 1ST LINE, R-CHOP 14, 6 CYCLES
     Dates: start: 201804, end: 201806

REACTIONS (3)
  - Lymphoma [Not Recovered/Not Resolved]
  - Drug ineffective [Unknown]
  - Platelet count decreased [Unknown]
